FAERS Safety Report 5218686-0 (Version None)
Quarter: 2007Q1

REPORT INFORMATION
  Report Type: 
  Country: None (occurrence: None)
  Receive Date: 20070122
  Receipt Date: 20070110
  Transmission Date: 20070707
  Serious: Yes (Disabling)
  Sender: FDA-Public Use
  Company Number: 234544

PATIENT
  Age: 21 Year
  Sex: Female
  Weight: 62.2 kg

DRUGS (21)
  1. NUTROPIN [Suspect]
     Indication: MEDULLOBLASTOMA
     Dosage: 0.4 MG, QD, SUBCUTANEOUS
     Route: 058
  2. ATENOLOL [Concomitant]
  3. CORTEF [Concomitant]
  4. DHEA (DEHYDROEPIANDROSTERONE) [Concomitant]
  5. FLUDROCORTISONE (FLUDROCORTISONE ACETATE) [Concomitant]
  6. FLUORIDE (FLUORIDENOS) [Concomitant]
  7. LAMICTAL [Concomitant]
  8. LOGESTREL (ETHINYL ESTRADIOL, NORGESTREL) [Concomitant]
  9. MAGNESIUM SULFATE [Concomitant]
  10. MULTIVITAMIN (MULTIVITAMINS NOS) [Concomitant]
  11. SINGULAIR [Concomitant]
  12. DRUG (GENERIC COMPONENT(S) NOT KNOWN) [Concomitant]
  13. TRILEPTAL [Concomitant]
  14. UNITHROID (LEVOTHYROXINE SODIUM) [Concomitant]
  15. VIACTIV (CALCIUM CARBONATE, CHOLECALCIFEROL, PHYTONADIONE) [Concomitant]
  16. VITAMIN D (CHOLECALCIFEROL) [Concomitant]
  17. VITAMIN E [Concomitant]
  18. PHYTONADIONE [Concomitant]
  19. ZOLOFT [Concomitant]
  20. ZYRTEC [Concomitant]
  21. TOPAMAX [Concomitant]

REACTIONS (4)
  - CARDIAC VENTRICULAR DISORDER [None]
  - CONVULSION [None]
  - FALL [None]
  - VERTIGO [None]
